FAERS Safety Report 7513232-0 (Version None)
Quarter: 2011Q2

REPORT INFORMATION
  Report Type: 
  Country: None (occurrence: None)
  Receive Date: 20110531
  Receipt Date: 20110120
  Transmission Date: 20111010
  Serious: Yes (Hospitalization, Other)
  Sender: FDA-Public Use
  Company Number: US-BAYER-201027084NA

PATIENT
  Age: 21 Year
  Sex: Female
  Weight: 45 kg

DRUGS (9)
  1. MORPHINE [Concomitant]
     Indication: ABDOMINAL PAIN
     Dosage: UNK
     Dates: start: 20070524
  2. ORAL CONTRACEPTIVE NOS [Concomitant]
  3. KEFLEX [Concomitant]
     Dosage: 250 MG, QID
     Dates: start: 20070405
  4. ZOSYN [Concomitant]
     Dosage: UNK
     Dates: start: 20070611
  5. TORADOL [Concomitant]
     Indication: ABDOMINAL PAIN
     Dosage: UNK
     Route: 042
     Dates: start: 20110524
  6. SYNTHROID [Concomitant]
  7. VICODIN [Concomitant]
     Dosage: UNK
     Dates: start: 20070523
  8. KLOR-CON [Concomitant]
  9. YAZ [Suspect]
     Indication: PREMENSTRUAL SYNDROME
     Dosage: UNK UNK, UNK
     Route: 048
     Dates: start: 20070101, end: 20100701

REACTIONS (6)
  - ABDOMINAL PAIN UPPER [None]
  - CHOLECYSTITIS CHRONIC [None]
  - ABDOMINAL PAIN [None]
  - GALLBLADDER DISORDER [None]
  - GASTROOESOPHAGEAL REFLUX DISEASE [None]
  - CHOLELITHIASIS [None]
